FAERS Safety Report 19815248 (Version 1)
Quarter: 2021Q3

REPORT INFORMATION
  Report Type: Spontaneous
  Country: US (occurrence: US)
  Receive Date: 20210910
  Receipt Date: 20210910
  Transmission Date: 20211014
  Serious: Yes (Hospitalization)
  Sender: FDA-Public Use
  Company Number: None

PATIENT
  Age: 62 Year
  Sex: Female
  Weight: 81 kg

DRUGS (3)
  1. CASIRIVIMAB?IMDEVIMAB [Suspect]
     Active Substance: CASIRIVIMAB\IMDEVIMAB
     Indication: COVID-19
     Dosage: ?          OTHER FREQUENCY:ONCE;?
     Route: 041
     Dates: start: 20210903, end: 20210903
  2. FERROUS SULFATE. [Concomitant]
     Active Substance: FERROUS SULFATE
  3. DULOXETINE. [Concomitant]
     Active Substance: DULOXETINE
     Dates: start: 20161213

REACTIONS (16)
  - Infusion related reaction [None]
  - Hypophagia [None]
  - Ageusia [None]
  - Blood sodium decreased [None]
  - Chest pain [None]
  - Blood glucose increased [None]
  - Blood pH increased [None]
  - Alanine aminotransferase increased [None]
  - Aspartate aminotransferase increased [None]
  - Anosmia [None]
  - Pyrexia [None]
  - Myalgia [None]
  - Dyspnoea [None]
  - Decreased appetite [None]
  - Serum ferritin increased [None]
  - Blood culture positive [None]

NARRATIVE: CASE EVENT DATE: 20210903
